FAERS Safety Report 22620435 (Version 2)
Quarter: 2023Q2

REPORT INFORMATION
  Report Type: Spontaneous
  Country: HK (occurrence: HK)
  Receive Date: 20230620
  Receipt Date: 20230626
  Transmission Date: 20230722
  Serious: Yes (Death, Other)
  Sender: FDA-Public Use
  Company Number: HK-PFIZER INC-202300222290

PATIENT
  Age: 81 Year
  Sex: Female

DRUGS (2)
  1. METRONIDAZOLE [Suspect]
     Active Substance: METRONIDAZOLE
     Indication: Bacterial infection
     Dosage: UNK
  2. CEFUROXIME [Suspect]
     Active Substance: CEFUROXIME
     Indication: Bacterial infection
     Dosage: UNK

REACTIONS (1)
  - Death [Fatal]
